FAERS Safety Report 7250040-2 (Version None)
Quarter: 2011Q1

REPORT INFORMATION
  Report Type: 
  Country: None (occurrence: None)
  Receive Date: 20110128
  Receipt Date: 20101217
  Transmission Date: 20110831
  Serious: Yes (Other)
  Sender: FDA-Public Use
  Company Number: US-BAYER-200942382NA

PATIENT
  Sex: Female

DRUGS (8)
  1. SINGULAIR [Concomitant]
     Dosage: 10 MG, UNK
  2. YASMIN [Suspect]
     Indication: PRODUCT USED FOR UNKNOWN INDICATION
     Dates: start: 20080227, end: 20090829
  3. DOXEPIN HCL [Concomitant]
     Dosage: 50 MG, UNK
  4. FEXOFENADINE HCL [Concomitant]
     Dosage: 180 MG, UNK
  5. BUPROPION [Concomitant]
     Dosage: 150 MG, UNK
  6. ACYCLOVIR [Concomitant]
     Dosage: 800 MG, UNK
  7. XOPENEX [Concomitant]
  8. CYMBALTA [Concomitant]
     Dosage: 60 MG, UNK

REACTIONS (7)
  - PAIN [None]
  - GALLBLADDER DISORDER [None]
  - GASTROOESOPHAGEAL REFLUX DISEASE [None]
  - CHOLELITHIASIS [None]
  - NAUSEA [None]
  - ABDOMINAL PAIN UPPER [None]
  - VOMITING [None]
